FAERS Safety Report 6444096-4 (Version None)
Quarter: 2009Q4

REPORT INFORMATION
  Report Type: 
  Country: None (occurrence: None)
  Receive Date: 20091118
  Receipt Date: 20091109
  Transmission Date: 20100525
  Serious: Yes (Other)
  Sender: FDA-Public Use
  Company Number: US-BIOGENIDEC-2009BI036976

PATIENT
  Age: 1 Day
  Sex: Female

DRUGS (3)
  1. AVONEX [Suspect]
     Indication: DRUG EXPOSURE DURING PREGNANCY
     Route: 030
     Dates: start: 19960101, end: 19981201
  2. AVONEX [Suspect]
     Route: 064
     Dates: start: 19991001, end: 20020201
  3. AVONEX [Suspect]
     Route: 030
     Dates: start: 20030101, end: 20030101

REACTIONS (2)
  - MATERNAL DRUGS AFFECTING FOETUS [None]
  - SMALL FOR DATES BABY [None]
